FAERS Safety Report 18000863 (Version 1)
Quarter: 2020Q3

REPORT INFORMATION
  Report Type: Spontaneous
  Country: GB (occurrence: GB)
  Receive Date: 20200709
  Receipt Date: 20200709
  Transmission Date: 20201103
  Serious: Yes (Other)
  Sender: FDA-Public Use
  Company Number: GB-JNJFOC-20200700763

PATIENT
  Age: 84 Year
  Sex: Female
  Weight: 80 kg

DRUGS (12)
  1. FERROUS SULFATE. [Concomitant]
     Active Substance: FERROUS SULFATE
     Dates: start: 20200611
  2. COCODAMOL [Concomitant]
     Active Substance: ACETAMINOPHEN\CODEINE PHOSPHATE
     Dosage: TAKE 1 OR 2 FOUR TIMES A DAY.
     Dates: start: 20191223
  3. LANSOPRAZOLE. [Concomitant]
     Active Substance: LANSOPRAZOLE
     Dates: start: 20191223
  4. TRIMETHOPRIM. [Concomitant]
     Active Substance: TRIMETHOPRIM
     Dates: start: 20200529, end: 20200601
  5. FUROSEMIDE. [Concomitant]
     Active Substance: FUROSEMIDE
     Dosage: EACH MORNING.
     Dates: start: 20200602
  6. HYPROMELLOSE [Concomitant]
     Active Substance: HYPROMELLOSES
     Dosage: 1?2 DROPS 3 TIMES A DAY.
     Dates: start: 20191223
  7. XARELTO [Suspect]
     Active Substance: RIVAROXABAN
     Indication: ATRIAL FIBRILLATION
     Route: 048
     Dates: start: 20191223, end: 20200611
  8. APIXABAN [Concomitant]
     Active Substance: APIXABAN
     Dates: start: 20200611
  9. ESTRIOL [Concomitant]
     Active Substance: ESTRIOL
     Dosage: APPLY AT NIGHT FOR 2 WEEKS
     Dates: start: 20200602
  10. SECURON [Concomitant]
     Active Substance: VERAPAMIL HYDROCHLORIDE
     Dates: start: 20191223
  11. CASSIA SENNA [Concomitant]
     Active Substance: HERBALS\SENNOSIDES
     Dosage: TAKE 1 OR 2 AT NIGHT.
     Dates: start: 20191223, end: 20200602
  12. DOCUSATE SODIUM. [Concomitant]
     Active Substance: DOCUSATE SODIUM
     Dosage: OR AS DIRECTED.
     Dates: start: 20191223, end: 20200602

REACTIONS (3)
  - Gastrointestinal haemorrhage [Unknown]
  - Dyspepsia [Unknown]
  - Anaemia [Recovering/Resolving]

NARRATIVE: CASE EVENT DATE: 20200611
